FAERS Safety Report 7821160-6 (Version None)
Quarter: 2011Q4

REPORT INFORMATION
  Report Type: 
  Country: None (occurrence: None)
  Receive Date: 20111018
  Receipt Date: 20110126
  Transmission Date: 20120403
  Serious: No
  Sender: FDA-Public Use
  Company Number: US-ASTRAZENECA-2011SE04786

PATIENT
  Age: 75 Year
  Sex: Female

DRUGS (4)
  1. CRESTOR [Suspect]
     Route: 048
  2. ATACAND [Suspect]
     Route: 048
  3. NEXIUM [Suspect]
     Route: 048
  4. SYMBICORT [Suspect]
     Route: 055

REACTIONS (2)
  - POST-TRAUMATIC STRESS DISORDER [None]
  - IRRITABILITY [None]
